FAERS Safety Report 4608198-7 (Version None)
Quarter: 2005Q1

REPORT INFORMATION
  Report Type: 
  Country: None (occurrence: None)
  Receive Date: 20050311
  Receipt Date: 20050307
  Transmission Date: 20050727
  Serious: Yes (Other)
  Sender: FDA-Public Use
  Company Number: 2005040586

PATIENT
  Age: 65 Year
  Sex: Male
  Weight: 92 kg

DRUGS (6)
  1. SORTIS (ATORVASTATIN) [Suspect]
     Indication: HYPERCHOLESTEROLAEMIA
     Dosage: 10 MG (10 MG, 1 IN 1 D), ORAL
     Route: 048
     Dates: start: 20040101, end: 20050207
  2. TORSEMIDE [Suspect]
     Indication: CARDIAC FAILURE CONGESTIVE
     Dosage: 10 MG (10 MG, 1 IN 1 D), ORAL
     Route: 048
  3. BISOPROLOL FUMARATE [Suspect]
     Indication: ESSENTIAL HYPERTENSION
     Dosage: 10 MG (10 MG, 1 IN 1 D), ORAL
     Route: 048
  4. DIOVAN HCT [Suspect]
     Indication: ESSENTIAL HYPERTENSION
     Dosage: 80 MG/12.5 MG (1 IN 1 D), ORAL
     Route: 048
  5. ESOMEPRAZOLE (ESOMEPRAZOLE) [Concomitant]
  6. INSULIN HUMAN INJECTION, SIOPHANE (INSULIN HUMAN INJECTION, SIOPHANE) [Concomitant]

REACTIONS (5)
  - DIZZINESS [None]
  - FALL [None]
  - FRACTURED SACRUM [None]
  - MUSCULAR WEAKNESS [None]
  - WOUND [None]
